FAERS Safety Report 11457526 (Version 1)
Quarter: 2015Q3

REPORT INFORMATION
  Report Type: Spontaneous
  Country: FR (occurrence: FR)
  Receive Date: 20150904
  Receipt Date: 20150904
  Transmission Date: 20151125
  Serious: Yes (Other)
  Sender: FDA-Public Use
  Company Number: FR-009507513-1509FRA000557

PATIENT
  Age: 68 Year
  Sex: Female

DRUGS (16)
  1. IRINOTECAN HYDROCHLORIDE. [Suspect]
     Active Substance: IRINOTECAN HYDROCHLORIDE
     Indication: COLORECTAL CANCER METASTATIC
     Dosage: STRENGTH: 20MG/ML, CYCLE 1
     Route: 042
     Dates: start: 20150609
  2. IRINOTECAN HYDROCHLORIDE. [Suspect]
     Active Substance: IRINOTECAN HYDROCHLORIDE
     Dosage: STRENGTH: 20MG/ML, UNK
     Route: 042
     Dates: start: 20150722
  3. PANTOPRAZOLE [Concomitant]
     Active Substance: PANTOPRAZOLE SODIUM
  4. XANAX [Concomitant]
     Active Substance: ALPRAZOLAM
  5. OXALIPLATIN. [Suspect]
     Active Substance: OXALIPLATIN
     Indication: COLORECTAL CANCER METASTATIC
     Dosage: STRENGTH: 5 MG/ML, CYCLE 1
     Route: 042
     Dates: start: 20150609
  6. OXALIPLATIN. [Suspect]
     Active Substance: OXALIPLATIN
     Dosage: STRENGTH: 5 MG/ML, CYCLE 2
     Route: 042
     Dates: start: 20150623
  7. OXALIPLATIN. [Suspect]
     Active Substance: OXALIPLATIN
     Dosage: STRENGTH: 5 MG/ML, CYCLE 3
     Route: 042
     Dates: start: 20150707
  8. AVASTIN [Suspect]
     Active Substance: BEVACIZUMAB
     Dosage: STRENGTH: 25 MG/ML, CYCLE 5
     Route: 042
     Dates: start: 20150818
  9. AVASTIN [Suspect]
     Active Substance: BEVACIZUMAB
     Dosage: STRENGTH: 25 MG/ML, CYCLE 4
     Route: 042
     Dates: start: 20150721
  10. OXALIPLATIN. [Suspect]
     Active Substance: OXALIPLATIN
     Dosage: STRENGTH: 5 MG/ML, CYCLE 4
     Route: 042
     Dates: start: 20150721
  11. AVASTIN [Suspect]
     Active Substance: BEVACIZUMAB
     Indication: COLORECTAL CANCER METASTATIC
     Dosage: STRENGTH: 25 MG/ML,CYCLE 1
     Route: 042
     Dates: start: 20150609
  12. IRINOTECAN HYDROCHLORIDE. [Suspect]
     Active Substance: IRINOTECAN HYDROCHLORIDE
     Dosage: STRENGTH: 20MG/ML, CYCLE 3
     Route: 042
     Dates: start: 20150707
  13. AVASTIN [Suspect]
     Active Substance: BEVACIZUMAB
     Dosage: STRENGTH: 25 MG/ML, CYCLE 2
     Route: 042
     Dates: start: 20150623
  14. AVASTIN [Suspect]
     Active Substance: BEVACIZUMAB
     Dosage: STRENGTH: 25 MG/ML, CYCLE 3
     Route: 042
     Dates: start: 20150707
  15. EMEND [Suspect]
     Active Substance: APREPITANT
     Indication: PROPHYLAXIS OF NAUSEA AND VOMITING
     Dosage: ON DAY-1, DAY-2 AND DAY-3, UNK
     Route: 048
     Dates: start: 20150609
  16. IRINOTECAN HYDROCHLORIDE. [Suspect]
     Active Substance: IRINOTECAN HYDROCHLORIDE
     Dosage: STRENGTH: 20MG/ML, CYCLE 4
     Route: 042
     Dates: start: 20150721

REACTIONS (3)
  - Muscle contracture [Recovered/Resolved]
  - Muscle spasms [Recovered/Resolved]
  - Muscle contractions involuntary [Recovered/Resolved]

NARRATIVE: CASE EVENT DATE: 20150609
